FAERS Safety Report 4914279-0 (Version None)
Quarter: 2006Q1

REPORT INFORMATION
  Report Type: 
  Country: None (occurrence: None)
  Receive Date: 20060216
  Receipt Date: 20060208
  Transmission Date: 20060701
  Serious: Yes (Hospitalization)
  Sender: FDA-Public Use
  Company Number: FR-BRISTOL-MYERS SQUIBB COMPANY-13276522

PATIENT
  Age: 56 Year
  Sex: Female

DRUGS (3)
  1. ABILIFY [Suspect]
     Indication: PSYCHOTIC DISORDER
     Route: 048
     Dates: end: 20060109
  2. SERESTA [Concomitant]
     Route: 048
  3. HALOPERIDOL [Concomitant]
     Dosage: LONG TERM TREATMENT
     Route: 030

REACTIONS (1)
  - AGRANULOCYTOSIS [None]
